FAERS Safety Report 5215110-9 (Version None)
Quarter: 2006Q4

REPORT INFORMATION
  Report Type: 
  Country: None (occurrence: None)
  Receive Date: 20061107
  Receipt Date: 20060918
  Transmission Date: 20070319
  Serious: No
  Sender: FDA-Public Use
  Company Number: 200614634BWH

PATIENT
  Age: 58 Year
  Sex: Male

DRUGS (5)
  1. LEVITRA [Suspect]
     Indication: DRUG USE FOR UNKNOWN INDICATION
     Dosage: 10 MG, ONCE, ORAL
     Route: 048
  2. HIGH BLOOD PRESSURE PILL [Concomitant]
  3. THYROID PILL [Concomitant]
  4. CHOLESTEROL PILL [Concomitant]
  5. GEL FOR LOW TESTOSTERONE [Concomitant]

REACTIONS (1)
  - DRUG INEFFECTIVE [None]
